FAERS Safety Report 6499399-4 (Version None)
Quarter: 2009Q4

REPORT INFORMATION
  Report Type: 
  Country: None (occurrence: None)
  Receive Date: 20091215
  Receipt Date: 20091208
  Transmission Date: 20100525
  Serious: Yes (Hospitalization, Other)
  Sender: FDA-Public Use
  Company Number: CA-BAYER-200939149NA

PATIENT
  Age: 26 Year
  Sex: Male
  Weight: 102 kg

DRUGS (8)
  1. BETASERON [Suspect]
     Indication: RELAPSING-REMITTING MULTIPLE SCLEROSIS
     Dosage: AS USED: 6 MIU
     Route: 058
     Dates: start: 20090101
  2. BETASERON [Suspect]
     Dosage: AS USED: 2 MIU
     Route: 058
     Dates: start: 20091110
  3. BETASERON [Suspect]
     Dosage: AS USED: 8 MIU
     Route: 058
     Dates: start: 20091103, end: 20091103
  4. BACLOFEN [Concomitant]
     Indication: MUSCLE SPASMS
     Route: 048
  5. CLONAZEPAM [Concomitant]
     Indication: INSOMNIA
     Route: 048
  6. PAXIL [Concomitant]
     Indication: DEPRESSION
     Route: 048
  7. MONOCORT [Concomitant]
     Indication: HYPERTENSION
     Route: 048
  8. DIOVAN [Concomitant]
     Indication: HYPERTENSION
     Route: 048

REACTIONS (11)
  - CHILLS [None]
  - DIZZINESS [None]
  - DYSPNOEA [None]
  - FATIGUE [None]
  - FEELING ABNORMAL [None]
  - HYPERHIDROSIS [None]
  - INITIAL INSOMNIA [None]
  - MOBILITY DECREASED [None]
  - NASOPHARYNGITIS [None]
  - PYREXIA [None]
  - SEXUAL DYSFUNCTION [None]
